FAERS Safety Report 11929291 (Version 3)
Quarter: 2016Q1

REPORT INFORMATION
  Report Type: Report from Study
  Country: IT (occurrence: IT)
  Receive Date: 20160120
  Receipt Date: 20160330
  Transmission Date: 20160526
  Serious: Yes (Hospitalization)
  Sender: FDA-Public Use
  Company Number: IT-AMGEN-ITANI2016006103

PATIENT
  Age: 72 Year
  Sex: Male

DRUGS (4)
  1. CARFILZOMIB [Suspect]
     Active Substance: CARFILZOMIB
     Dosage: 56 MG/MQ
     Route: 065
     Dates: end: 20151223
  2. CARFILZOMIB [Suspect]
     Active Substance: CARFILZOMIB
     Indication: PLASMA CELL MYELOMA
     Dosage: 20-27 MG/MQ
     Route: 065
     Dates: end: 20151223
  3. DEXAMETHASONE. [Concomitant]
     Active Substance: DEXAMETHASONE
     Dosage: 20 MG, 1-2-8-9-15-16-22-23
     Dates: start: 20151110, end: 20151224
  4. CARFILZOMIB [Suspect]
     Active Substance: CARFILZOMIB
     Dosage: 37.6 MG, EV, 1 AND 2 DAYS
     Route: 065
     Dates: start: 20151110, end: 20160302

REACTIONS (2)
  - Acute myocardial infarction [Recovered/Resolved]
  - Thrombocytopenia [Recovered/Resolved]

NARRATIVE: CASE EVENT DATE: 20151224
